APPROVED DRUG PRODUCT: LITHIUM CARBONATE
Active Ingredient: LITHIUM CARBONATE
Strength: 450MG
Dosage Form/Route: TABLET, EXTENDED RELEASE;ORAL
Application: A202219 | Product #001
Applicant: PHARMOBEDIENT CONSULTING LLC
Approved: Aug 8, 2012 | RLD: No | RS: No | Type: DISCN